FAERS Safety Report 6851773-X (Version None)
Quarter: 2010Q3

REPORT INFORMATION
  Report Type: 
  Country: None (occurrence: None)
  Receive Date: 20100717
  Receipt Date: 20071029
  Transmission Date: 20110219
  Serious: No
  Sender: FDA-Public Use
  Company Number: US-PFIZER INC-2007092468

PATIENT
  Sex: Female
  Weight: 44.545 kg

DRUGS (2)
  1. CHANTIX [Suspect]
     Indication: SMOKING CESSATION THERAPY
     Dates: start: 20071021
  2. NASONEX [Concomitant]

REACTIONS (3)
  - FATIGUE [None]
  - MALAISE [None]
  - VOMITING [None]
